FAERS Safety Report 7407638-8 (Version None)
Quarter: 2011Q2

REPORT INFORMATION
  Report Type: 
  Country: None (occurrence: None)
  Receive Date: 20110405
  Receipt Date: 20110321
  Transmission Date: 20111010
  Serious: Yes (Other)
  Sender: FDA-Public Use
  Company Number: 2011MA002671

PATIENT
  Age: 65 Year
  Sex: Female

DRUGS (2)
  1. PACLITAXEL INJECTION, 6MG/ML (ATLLC) [Suspect]
     Indication: BREAST CANCER
     Dosage: QW
     Dates: start: 20080701
  2. BEVACIZUMAB [Concomitant]

REACTIONS (3)
  - VISUAL ACUITY REDUCED [None]
  - PROTEINURIA [None]
  - CYSTOID MACULAR OEDEMA [None]
